FAERS Safety Report 7095907-3 (Version None)
Quarter: 2010Q4

REPORT INFORMATION
  Report Type: 
  Country: None (occurrence: None)
  Receive Date: 20101111
  Receipt Date: 20101102
  Transmission Date: 20110411
  Serious: Yes (Death, Hospitalization)
  Sender: FDA-Public Use
  Company Number: GB-NAPPMUNDI-GBR-2010-0007281

PATIENT
  Age: 68 Year
  Sex: Female
  Weight: 51.7 kg

DRUGS (7)
  1. MS CONTIN [Suspect]
     Indication: PRODUCT USED FOR UNKNOWN INDICATION
     Dosage: UNK
     Route: 048
     Dates: start: 20060420
  2. SEVREDOL TABLETS [Suspect]
     Indication: PRODUCT USED FOR UNKNOWN INDICATION
     Dosage: UNK
     Route: 065
     Dates: start: 20041201
  3. SUNITINIB MALATE [Suspect]
     Indication: RENAL CELL CARCINOMA
     Dosage: 50 MG, DAILY CYCLIC
     Route: 048
     Dates: start: 20060407
  4. GABAPENTIN [Suspect]
     Indication: PRODUCT USED FOR UNKNOWN INDICATION
     Route: 065
  5. IBANDRONIC ACID [Concomitant]
     Dosage: UNK
     Route: 065
     Dates: start: 20060513
  6. AUGMENTIN '125' [Concomitant]
     Dosage: UNK
     Route: 065
     Dates: start: 20060505, end: 20060511
  7. SENNA                              /00142201/ [Concomitant]
     Route: 065

REACTIONS (6)
  - CONSTIPATION [None]
  - DEHYDRATION [None]
  - DISEASE PROGRESSION [None]
  - DIZZINESS [None]
  - PAIN [None]
  - RENAL CELL CARCINOMA [None]
